FAERS Safety Report 5567613-5 (Version None)
Quarter: 2007Q4

REPORT INFORMATION
  Report Type: 
  Country: None (occurrence: None)
  Receive Date: 20071214
  Receipt Date: 20071204
  Transmission Date: 20080405
  Serious: Yes (Other)
  Sender: FDA-Public Use
  Company Number: 2007337275

PATIENT
  Sex: Male

DRUGS (3)
  1. NICORETTE [Suspect]
     Indication: PARKINSON'S DISEASE
     Dosage: TRANSDERMAL
     Route: 062
  2. L-DOPA (LEVODOPA) [Concomitant]
  3. PERGOLIDE (PERGOLIDE) [Concomitant]

REACTIONS (1)
  - ORTHOSTATIC HYPOTENSION [None]
